FAERS Safety Report 8334315-1 (Version None)
Quarter: 2012Q1

REPORT INFORMATION
  Report Type: 
  Country: None (occurrence: None)
  Receive Date: 20120329
  Receipt Date: 20110223
  Transmission Date: 20120608
  Serious: Yes (Other)
  Sender: FDA-Public Use
  Company Number: WAES 1101USA01798

PATIENT
  Age: 60 Year
  Sex: Female
  Weight: 49.4421 kg

DRUGS (7)
  1. ZANTAC [Concomitant]
  2. ALOXI [Concomitant]
  3. BENADRYL [Concomitant]
  4. DEXAMETHASONE [Concomitant]
  5. TAXOL [Concomitant]
  6. CISPLATIN [Concomitant]
  7. EMEND [Suspect]
     Indication: PRODUCT USED FOR UNKNOWN INDICATION
     Dosage: 115 MG/1X/IV
     Route: 042

REACTIONS (4)
  - DYSPNOEA [None]
  - FEELING HOT [None]
  - FLUSHING [None]
  - HYPOTENSION [None]
